FAERS Safety Report 9843590 (Version 1)
Quarter: 2013Q4

REPORT INFORMATION
  Report Type: Spontaneous
  Country: US (occurrence: None)
  Receive Date: 20131223
  Receipt Date: 20131223
  Transmission Date: 20140711
  Serious: Yes (Other)
  Sender: FDA-Public Use
  Company Number: 221738LEO

PATIENT
  Sex: Female

DRUGS (1)
  1. PICATO (0.015 %, GEL) [Suspect]
     Indication: ACTINIC KERATOSIS
     Dosage: (DAILY), DERMAL
     Dates: start: 20130502, end: 20130504

REACTIONS (3)
  - Application site vesicles [None]
  - Application site discolouration [None]
  - Application site exfoliation [None]
